FAERS Safety Report 13388194 (Version 1)
Quarter: 2017Q1

REPORT INFORMATION
  Report Type: Spontaneous
  Country: GR (occurrence: GR)
  Receive Date: 20170330
  Receipt Date: 20170330
  Transmission Date: 20170429
  Serious: Yes (Other)
  Sender: FDA-Public Use
  Company Number: GR-BAYER-2017-053663

PATIENT
  Age: 49 Year
  Sex: Female

DRUGS (1)
  1. SORAFENIB (RAF KINASE INHIBITOR) [Suspect]
     Active Substance: SORAFENIB
     Dosage: DAILY DOSE 800 MG

REACTIONS (4)
  - Metastases to eye [None]
  - Palmar-plantar erythrodysaesthesia syndrome [None]
  - Retinal haemorrhage [None]
  - Diarrhoea [None]
